FAERS Safety Report 6120068-4 (Version None)
Quarter: 2009Q1

REPORT INFORMATION
  Report Type: 
  Country: None (occurrence: None)
  Receive Date: 20090316
  Receipt Date: 20090306
  Transmission Date: 20090719
  Serious: Yes (Other)
  Sender: FDA-Public Use
  Company Number: GB-AMGEN-US337691

PATIENT
  Sex: Female

DRUGS (3)
  1. ENBREL [Suspect]
     Indication: RHEUMATOID ARTHRITIS
     Dosage: UNKNOWN
     Route: 058
  2. TRAMADOL HCL [Concomitant]
     Dosage: UNKNOWN
  3. PREDNISOLONE [Concomitant]

REACTIONS (1)
  - MYELODYSPLASTIC SYNDROME [None]
